FAERS Safety Report 16878555 (Version 1)
Quarter: 2019Q4

REPORT INFORMATION
  Report Type: Spontaneous
  Country: US (occurrence: US)
  Receive Date: 20191002
  Receipt Date: 20191002
  Transmission Date: 20200122
  Serious: No
  Sender: FDA-Public Use
  Company Number: US-SA-2019SA263879

PATIENT
  Age: 43 Year
  Sex: Female

DRUGS (10)
  1. BETAMETHASONE. [Concomitant]
     Active Substance: BETAMETHASONE
  2. VALIUM [Concomitant]
     Active Substance: DIAZEPAM
  3. HYDROCORTISONE. [Concomitant]
     Active Substance: HYDROCORTISONE
  4. PREDNISONE. [Concomitant]
     Active Substance: PREDNISONE
  5. DUPIXENT [Suspect]
     Active Substance: DUPILUMAB
     Indication: DERMATITIS ATOPIC
     Dosage: 300 MG, QOW
     Route: 058
     Dates: start: 20190801
  6. DIAZEPAM. [Concomitant]
     Active Substance: DIAZEPAM
  7. BISOPROLOL [Concomitant]
     Active Substance: BISOPROLOL
  8. MONTELUKAST [Concomitant]
     Active Substance: MONTELUKAST SODIUM
  9. KETOCONAZOLE. [Concomitant]
     Active Substance: KETOCONAZOLE
  10. LISINOPRIL. [Concomitant]
     Active Substance: LISINOPRIL

REACTIONS (1)
  - Dermatitis [Not Recovered/Not Resolved]

NARRATIVE: CASE EVENT DATE: 20190915
